FAERS Safety Report 23691089 (Version 3)
Quarter: 2024Q2

REPORT INFORMATION
  Report Type: Spontaneous
  Country: DE (occurrence: DE)
  Receive Date: 20240401
  Receipt Date: 20240430
  Transmission Date: 20240716
  Serious: Yes (Other)
  Sender: FDA-Public Use
  Company Number: DE-MYLANLABS-2023M1135080

PATIENT
  Age: 57 Year
  Sex: Male

DRUGS (16)
  1. EVEROLIMUS [Suspect]
     Active Substance: EVEROLIMUS
     Indication: Hodgkin^s disease
     Dosage: 15 MILLIGRAM, ONCE A DAY  (28 DAY CYCLE)
     Route: 048
     Dates: start: 202208, end: 202305
  2. PIOGLITAZONE [Suspect]
     Active Substance: PIOGLITAZONE
     Indication: Hodgkin^s disease
     Dosage: 45 MILLIGRAM, ONCE A DAY  (28 DAY CYCLE)
     Route: 048
     Dates: start: 202208, end: 202305
  3. BRENTUXIMAB VEDOTIN [Suspect]
     Active Substance: BRENTUXIMAB VEDOTIN
     Indication: Hodgkin^s disease
     Dosage: UNK, 7 CYCLICAL
     Route: 065
     Dates: start: 2020
  4. ADRIAMYCIN [Suspect]
     Active Substance: DOXORUBICIN HYDROCHLORIDE
     Indication: Hodgkin^s disease nodular sclerosis stage III
     Dosage: UNK TOTAL 5 CYCLES
     Route: 065
     Dates: start: 2014
  5. BLEOMYCIN [Suspect]
     Active Substance: BLEOMYCIN SULFATE
     Indication: Hodgkin^s disease nodular sclerosis stage III
     Dosage: UNK TOTAL 5 CYCLES
     Route: 065
     Dates: start: 2014
  6. CYCLOPHOSPHAMIDE [Suspect]
     Active Substance: CYCLOPHOSPHAMIDE
     Indication: Hodgkin^s disease nodular sclerosis stage III
     Dosage: UNK TOTAL 5 CYCLES
     Route: 065
     Dates: start: 2014
  7. ETOPOSIDE [Suspect]
     Active Substance: ETOPOSIDE
     Indication: Hodgkin^s disease nodular sclerosis stage III
     Dosage: UNK TOTAL 5 CYCLES
     Route: 065
     Dates: start: 2014
  8. PEMBROLIZUMAB [Suspect]
     Active Substance: PEMBROLIZUMAB
     Indication: Hodgkin^s disease
     Dosage: UNK CYCLICAL
     Route: 065
     Dates: start: 202011, end: 202207
  9. PREDNISOLONE [Suspect]
     Active Substance: PREDNISOLONE
     Indication: Hodgkin^s disease nodular sclerosis stage III
     Dosage: UNK
     Route: 065
     Dates: start: 2014
  10. PROCARBAZINE [Suspect]
     Active Substance: PROCARBAZINE
     Indication: Hodgkin^s disease nodular sclerosis stage III
     Dosage: UNK TOTAL 5 CYCLES
     Route: 065
     Dates: start: 2014
  11. VINCRISTINE [Suspect]
     Active Substance: VINCRISTINE
     Indication: Hodgkin^s disease nodular sclerosis stage III
     Dosage: UNKTOTAL 5 CYCLES
     Route: 065
     Dates: start: 2014
  12. DEXAMETHASONE [Suspect]
     Active Substance: DEXAMETHASONE
     Indication: Hodgkin^s disease
     Dosage: 0.5 MILLIGRAM, ONCE A DAY (28 DAY CYCLE)
     Route: 048
     Dates: start: 202208, end: 202305
  13. ETORICOXIB [Suspect]
     Active Substance: ETORICOXIB
     Indication: Hodgkin^s disease
     Dosage: 60 MILLIGRAM, ONCE A DAY (28 DAY CYCLE)
     Route: 048
     Dates: start: 202208, end: 202305
  14. TREOSULFAN [Suspect]
     Active Substance: TREOSULFAN
     Dosage: 250 MILLIGRAM, ONCE A DAY  (28 DAY CYCLE)
     Route: 048
     Dates: start: 202208, end: 202305
  15. EVEROLIMUS [Concomitant]
     Active Substance: EVEROLIMUS
     Indication: Hodgkin^s disease nodular sclerosis stage III
     Dosage: 15 MILLIGRAM, ONCE A DAY
     Route: 048
     Dates: start: 202208, end: 202305
  16. METOCLOPRAMIDE [Concomitant]
     Active Substance: METOCLOPRAMIDE
     Indication: Antiemetic supportive care
     Dosage: UNK
     Route: 065
     Dates: start: 202208

REACTIONS (8)
  - Oedema peripheral [Recovered/Resolved]
  - Lung infiltration [Recovered/Resolved]
  - Pneumonia [Recovered/Resolved]
  - Urinary tract infection [Recovered/Resolved]
  - Weight increased [Recovered/Resolved]
  - Pneumonitis chemical [Recovered/Resolved]
  - Drug ineffective [Unknown]
  - Off label use [Unknown]

NARRATIVE: CASE EVENT DATE: 20230501
